FAERS Safety Report 6243611-3 (Version None)
Quarter: 2009Q2

REPORT INFORMATION
  Report Type: 
  Country: None (occurrence: None)
  Receive Date: 20090624
  Receipt Date: 20090612
  Transmission Date: 20091009
  Serious: Yes (Other)
  Sender: FDA-Public Use
  Company Number: GB-PFIZER INC-2009226333

PATIENT
  Age: 21 Year

DRUGS (1)
  1. LYRICA [Suspect]
     Dosage: UNK
     Dates: end: 20070101

REACTIONS (1)
  - EPILEPSY [None]
